FAERS Safety Report 8190709-9 (Version None)
Quarter: 2012Q1

REPORT INFORMATION
  Report Type: 
  Country: None (occurrence: None)
  Receive Date: 20120221
  Receipt Date: 20111205
  Transmission Date: 20120608
  Serious: No
  Sender: FDA-Public Use
  Company Number: 1000025999

PATIENT
  Age: 72 Year
  Sex: Female

DRUGS (8)
  1. NORVASC [Concomitant]
  2. XANAX [Concomitant]
  3. BABY ASPIRIN (ACETYLSALICYLIC ACID) (ACETYLSALICYLIC ACID) [Concomitant]
  4. KLONOPIN [Concomitant]
  5. ANTIHISTAMINE NOS (ANTIHISTAMINE NOS) (ANTIHISTAMINE NOS) [Concomitant]
  6. VIIBRYD [Suspect]
     Indication: DEPRESSION
     Dosage: 10 MG (10 MG, 1 IN 1 D), ORAL
     Route: 048
     Dates: start: 20111111
  7. DIOVAN [Concomitant]
  8. METOPROLOL TARTRATE [Concomitant]

REACTIONS (7)
  - SOMNOLENCE [None]
  - INFLUENZA LIKE ILLNESS [None]
  - DIZZINESS [None]
  - ASTHENIA [None]
  - FATIGUE [None]
  - FEELING COLD [None]
  - BURNING SENSATION [None]
